FAERS Safety Report 11012483 (Version 1)
Quarter: 2015Q2

REPORT INFORMATION
  Report Type: Spontaneous
  Country: US (occurrence: None)
  Receive Date: 20150407
  Receipt Date: 20150407
  Transmission Date: 20150821
  Serious: Yes (Hospitalization, Other)
  Sender: FDA-Public Use
  Company Number: LH201500048

PATIENT
  Age: 28 Year
  Sex: Female

DRUGS (1)
  1. MAKENA [Suspect]
     Active Substance: HYDROXYPROGESTERONE CAPROATE
     Indication: UTERINE CONTRACTIONS DURING PREGNANCY
     Dosage: 250 MG ONCE WEEKLY, INTRAMUSCULAR
     Route: 030
     Dates: start: 20141208, end: 20141208

REACTIONS (2)
  - Premature rupture of membranes [None]
  - Off label use [None]

NARRATIVE: CASE EVENT DATE: 20141208
